FAERS Safety Report 13898384 (Version 3)
Quarter: 2024Q2

REPORT INFORMATION
  Report Type: Report from Study
  Country: FR (occurrence: FR)
  Receive Date: 20170824
  Receipt Date: 20240627
  Transmission Date: 20240716
  Serious: Yes (Hospitalization, Other)
  Sender: FDA-Public Use
  Company Number: FR-JNJFOC-20170818962

PATIENT
  Age: 15 Year
  Sex: Male
  Weight: 38.4 kg

DRUGS (7)
  1. REMICADE [Suspect]
     Active Substance: INFLIXIMAB
     Indication: Crohn^s disease
     Route: 041
     Dates: start: 20131119, end: 20131119
  2. REMICADE [Suspect]
     Active Substance: INFLIXIMAB
     Route: 041
     Dates: start: 20131203, end: 20150417
  3. HUMIRA [Concomitant]
     Active Substance: ADALIMUMAB
     Route: 065
     Dates: start: 20150427, end: 20151027
  4. HUMIRA [Concomitant]
     Active Substance: ADALIMUMAB
     Route: 065
  5. AZATHIOPRINE [Concomitant]
     Active Substance: AZATHIOPRINE
     Route: 065
  6. FLUTICASONE [Concomitant]
     Active Substance: FLUTICASONE
     Route: 065
  7. DESONIDE [Concomitant]
     Active Substance: DESONIDE
     Route: 065

REACTIONS (12)
  - Crohn^s disease [Recovered/Resolved]
  - Treatment noncompliance [Recovered/Resolved]
  - Anal abscess [Recovered/Resolved]
  - Hepatic steatosis [Recovered/Resolved]
  - Inflammation [Recovered/Resolved]
  - Blood albumin decreased [Recovered/Resolved]
  - Vomiting [Recovered/Resolved]
  - Renal colic [Recovered/Resolved]
  - Thrombocytosis [Recovered/Resolved]
  - Cough [Recovered/Resolved]
  - Large intestine infection [Recovered/Resolved]
  - Gastroenteritis [Recovered/Resolved]

NARRATIVE: CASE EVENT DATE: 20170206
